FAERS Safety Report 12883013 (Version 2)
Quarter: 2017Q4

REPORT INFORMATION
  Report Type: Spontaneous
  Country: US (occurrence: US)
  Receive Date: 20161025
  Receipt Date: 20171024
  Transmission Date: 20180320
  Serious: No
  Sender: FDA-Public Use
  Company Number: US-SA-2016SA151614

PATIENT
  Age: 16 Year
  Sex: Male

DRUGS (2)
  1. LUMIZYME [Suspect]
     Active Substance: ALGLUCOSIDASE ALFA
     Indication: GLYCOGEN STORAGE DISEASE TYPE II
     Dosage: DOSE: 9 VIALS TO 12 VIALS
     Route: 041
     Dates: start: 2014
  2. LUMIZYME [Suspect]
     Active Substance: ALGLUCOSIDASE ALFA
     Indication: GLYCOGEN STORAGE DISEASE TYPE II
     Dosage: DOSE: 64 VIALS
     Route: 041

REACTIONS (3)
  - Disease progression [Not Recovered/Not Resolved]
  - Weight decreased [Unknown]
  - Muscular weakness [Not Recovered/Not Resolved]
